FAERS Safety Report 4528041-4 (Version None)
Quarter: 2004Q4

REPORT INFORMATION
  Report Type: 
  Country: None (occurrence: None)
  Receive Date: 20041129
  Receipt Date: 20041019
  Transmission Date: 20050328
  Serious: Yes (Hospitalization)
  Sender: FDA-Public Use
  Company Number: US_991029935

PATIENT
  Age: 21 Year
  Sex: Male
  Weight: 82 kg

DRUGS (5)
  1. ZYPREXA [Suspect]
     Indication: BIPOLAR DISORDER
     Dosage: 20 MG/DAY
     Dates: start: 19981201
  2. DEPAKOTE [Concomitant]
  3. KLONOPIN [Concomitant]
  4. LAMICTAL [Concomitant]
  5. CELEXA [Concomitant]

REACTIONS (6)
  - BLOOD GLUCOSE INCREASED [None]
  - DIABETES MELLITUS INSULIN-DEPENDENT [None]
  - MANIA [None]
  - POLYDIPSIA [None]
  - POLYURIA [None]
  - VOMITING [None]
